FAERS Safety Report 9122534 (Version 2)
Quarter: 2012Q4

REPORT INFORMATION
  Report Type: Spontaneous
  Country: VE (occurrence: None)
  Receive Date: 20120907
  Receipt Date: 20120911
  Transmission Date: 20130627
  Serious: Yes (Death, Hospitalization)
  Sender: FDA-Public Use
  Company Number: MPS1-1000770

PATIENT
  Age: 14 Year
  Sex: Female

DRUGS (2)
  1. ALDURAZYME [Suspect]
     Indication: MUCOPOLYSACCHARIDOSIS I
     Route: 042
     Dates: start: 20101128, end: 20120809
  2. PEDIASURE (CARBOHYDRATES, FATS NOS, MINERALS NOS, PROTEIN, VITAMINS NOS) [Concomitant]

REACTIONS (4)
  - Pneumonia [None]
  - Infection [None]
  - Convulsion [None]
  - Constipation [None]
